FAERS Safety Report 16363360 (Version 1)
Quarter: 2019Q2

REPORT INFORMATION
  Report Type: Spontaneous
  Country: GR (occurrence: GR)
  Receive Date: 20190528
  Receipt Date: 20190528
  Transmission Date: 20190711
  Serious: Yes (Other)
  Sender: FDA-Public Use
  Company Number: GR-MYLANLABS-2019M1048745

PATIENT

DRUGS (9)
  1. FENTANYL. [Suspect]
     Active Substance: FENTANYL
     Indication: PRODUCT USED FOR UNKNOWN INDICATION
     Dosage: 0.5 MILLIGRAM (DOSAGE FORM: UNSPECIFIED)
     Route: 064
  2. RANITIDINE. [Concomitant]
     Active Substance: RANITIDINE
     Dosage: DOSAGE FORM: UNSPECIFIED
     Route: 064
  3. REMIFENTANIL [Concomitant]
     Active Substance: REMIFENTANIL
     Indication: ANAESTHESIA
     Dosage: DOSAGE FORM: UNSPECIFIED
     Route: 064
  4. METOCLOPRAMIDE. [Concomitant]
     Active Substance: METOCLOPRAMIDE
     Dosage: DOSAGE FORM: UNSPECIFIED
     Route: 064
  5. MAGNESIUM SULFATE. [Concomitant]
     Active Substance: MAGNESIUM SULFATE
     Dosage: DOSAGE FORM: UNSPECIFIED
     Route: 064
  6. PENTOTHAL [Concomitant]
     Active Substance: THIOPENTAL SODIUM
     Indication: ANAESTHESIA
     Dosage: DOSAGE FORM: UNSPECIFIED
     Route: 065
  7. HYDRALAZINE [Concomitant]
     Active Substance: HYDRALAZINE HYDROCHLORIDE
     Dosage: DOSAGE FORM: UNSPECIFIED
     Route: 064
  8. SUCCINYLCHOLINE                    /00057702/ [Concomitant]
     Active Substance: SUCCINYLCHOLINE CHLORIDE
     Indication: ANAESTHESIA
     Dosage: DOSAGE FORM: UNSPECIFIED
     Route: 064
  9. SODIUM CITRATE. [Concomitant]
     Active Substance: SODIUM CITRATE
     Indication: GENERAL ANAESTHESIA
     Dosage: DOSAGE FORM: UNSPECIFIED
     Route: 064

REACTIONS (2)
  - Premature baby [Recovered/Resolved]
  - Foetal exposure during pregnancy [Recovered/Resolved]
